FAERS Safety Report 9130159 (Version 2)
Quarter: 2013Q2

REPORT INFORMATION
  Report Type: Report from Study
  Country: DE (occurrence: DE)
  Receive Date: 20130228
  Receipt Date: 20130403
  Transmission Date: 20140414
  Serious: Yes (Other)
  Sender: FDA-Public Use
  Company Number: DE-CELGENEUS-062-21880-13022618

PATIENT
  Age: 55 Year
  Sex: Female
  Weight: 85 kg

DRUGS (23)
  1. REVLIMID [Suspect]
     Indication: PLASMA CELL MYELOMA
     Route: 048
     Dates: start: 20111118
  2. REVLIMID [Suspect]
     Dosage: 25 MILLIGRAM
     Route: 048
  3. REVLIMID [Suspect]
     Dosage: 15 MILLIGRAM
     Route: 048
     Dates: start: 20120113, end: 20120202
  4. REVLIMID [Suspect]
     Dosage: 25 MILLIGRAM
     Route: 048
     Dates: start: 20120210, end: 20120301
  5. DEXAMETHASONE [Suspect]
     Indication: PLASMA CELL MYELOMA
     Route: 065
     Dates: start: 20111118
  6. DEXAMETHASONE [Suspect]
     Dosage: 40 MILLIGRAM
     Route: 048
  7. DEXAMETHASONE [Suspect]
     Route: 065
     Dates: start: 20120210, end: 20120213
  8. DEXAMETHASONE [Suspect]
     Route: 065
     Dates: start: 20120225, end: 20120228
  9. ADRIAMYCIN [Suspect]
     Indication: PLASMA CELL MYELOMA
     Route: 065
     Dates: start: 20111118
  10. ADRIAMYCIN [Suspect]
     Dosage: 9MG/M2
     Route: 041
  11. FLUCTIN [Concomitant]
     Indication: DEPRESSION
     Route: 065
     Dates: start: 1999
  12. BETAMETHASONE [Concomitant]
     Indication: PROPHYLAXIS
     Route: 065
     Dates: start: 20111216
  13. CLEXANE [Concomitant]
     Indication: THROMBOSIS PROPHYLAXIS
     Route: 065
     Dates: start: 20111118
  14. TARGIN [Concomitant]
     Indication: PAIN
     Route: 065
     Dates: start: 20111216
  15. NOVALGIN [Concomitant]
     Indication: PAIN
     Route: 065
     Dates: start: 20111118
  16. ACICLOVIR [Concomitant]
     Indication: PROPHYLAXIS
     Route: 065
     Dates: start: 20111118
  17. COTRIM FORTE [Concomitant]
     Indication: PROPHYLAXIS
     Route: 065
     Dates: start: 20111118
  18. FOLSAN [Concomitant]
     Indication: PROPHYLAXIS
     Route: 065
     Dates: start: 20111118
  19. AMPHOTERICIN B [Concomitant]
     Indication: PROPHYLAXIS
     Route: 065
     Dates: start: 20111118
  20. CIPROFLOXACIN [Concomitant]
     Indication: PROPHYLAXIS
     Route: 065
     Dates: start: 20111118
  21. SOLUTION AGAINST STOMITIS [Concomitant]
     Indication: PROPHYLAXIS
     Route: 065
     Dates: start: 20111118
  22. NEULASTA [Concomitant]
     Indication: PROPHYLAXIS
     Route: 065
     Dates: start: 20111122
  23. PAMIDRONATE [Concomitant]
     Indication: PROPHYLAXIS
     Route: 065
     Dates: start: 20111118

REACTIONS (1)
  - Pregnancy test false positive [Recovered/Resolved]
